FAERS Safety Report 8508332-2 (Version None)
Quarter: 2012Q3

REPORT INFORMATION
  Report Type: 
  Country: None (occurrence: None)
  Receive Date: 20120713
  Receipt Date: 20120704
  Transmission Date: 20120928
  Serious: Yes (Hospitalization)
  Sender: FDA-Public Use
  Company Number: CA-JNJFOC-20120702624

PATIENT
  Sex: Male
  Weight: 86 kg

DRUGS (2)
  1. MICARDIS [Concomitant]
     Indication: HYPERTENSION
     Route: 065
  2. REMICADE [Suspect]
     Indication: CROHN'S DISEASE
     Route: 042
     Dates: start: 20120508

REACTIONS (1)
  - PERICARDITIS [None]
